FAERS Safety Report 19168450 (Version 3)
Quarter: 2021Q2

REPORT INFORMATION
  Report Type: Report from Study
  Country: US (occurrence: US)
  Receive Date: 20210422
  Receipt Date: 20210604
  Transmission Date: 20210717
  Serious: No
  Sender: FDA-Public Use
  Company Number: NVSC2021US091156

PATIENT
  Age: 84 Year
  Sex: Male

DRUGS (1)
  1. PROMACTA [Suspect]
     Active Substance: ELTROMBOPAG OLAMINE
     Indication: IMMUNE THROMBOCYTOPENIA
     Dosage: 50 MG, QD
     Route: 048

REACTIONS (4)
  - Platelet count decreased [Unknown]
  - Vomiting [Unknown]
  - Nausea [Unknown]
  - Drug ineffective [Unknown]

NARRATIVE: CASE EVENT DATE: 20210412
